FAERS Safety Report 16171547 (Version 4)
Quarter: 2019Q2

REPORT INFORMATION
  Report Type: Spontaneous
  Country: NL (occurrence: NL)
  Receive Date: 20190408
  Receipt Date: 20190412
  Transmission Date: 20190711
  Serious: Yes (Death)
  Sender: FDA-Public Use
  Company Number: PHHY2019NL080067

PATIENT
  Age: 86 Year
  Sex: Female

DRUGS (3)
  1. PREDNISOLONE. [Suspect]
     Active Substance: PREDNISOLONE
     Indication: ARTHRITIS
  2. PREDNISOLONE. [Suspect]
     Active Substance: PREDNISOLONE
     Indication: POLYARTERITIS NODOSA
     Dosage: UNK
     Route: 065
  3. COLCHICINE. [Suspect]
     Active Substance: COLCHICINE
     Indication: GOUT
     Dosage: UNK
     Route: 065

REACTIONS (5)
  - Dactylitis [Fatal]
  - Mycobacterium marinum infection [Fatal]
  - Erythema [Fatal]
  - Tenosynovitis [Fatal]
  - Skin mass [Fatal]
